FAERS Safety Report 5948907-8 (Version None)
Quarter: 2008Q4

REPORT INFORMATION
  Report Type: 
  Country: None (occurrence: None)
  Receive Date: 20081111
  Receipt Date: 20081030
  Transmission Date: 20090506
  Serious: Yes (Hospitalization)
  Sender: FDA-Public Use
  Company Number: BE-ROCHE-594599

PATIENT
  Sex: Female
  Weight: 68 kg

DRUGS (5)
  1. PEG-INTERFERON ALFA 2A (RO 25-8310) [Suspect]
     Indication: HEPATITIS C
     Route: 058
     Dates: start: 20080630
  2. PEG-INTERFERON ALFA 2A (RO 25-8310) [Suspect]
     Route: 058
  3. RIBAVIRIN [Suspect]
     Indication: HEPATITIS C
     Route: 048
     Dates: start: 20080630
  4. RIBAVIRIN [Suspect]
     Route: 048
  5. TACROLIMUS [Concomitant]
     Indication: LIVER TRANSPLANT
     Dosage: FREQUENCY DAILY.
     Route: 048
     Dates: start: 20070901

REACTIONS (1)
  - RENAL FAILURE [None]
